FAERS Safety Report 5398293-X (Version None)
Quarter: 2007Q3

REPORT INFORMATION
  Report Type: 
  Country: None (occurrence: None)
  Receive Date: 20070726
  Receipt Date: 20070719
  Transmission Date: 20080115
  Serious: Yes (Hospitalization)
  Sender: FDA-Public Use
  Company Number: CN-MERCK-0707USA03726

PATIENT
  Age: 57 Year
  Sex: Male

DRUGS (2)
  1. PRIMAXIN [Suspect]
     Indication: SALMONELLOSIS
     Route: 065
  2. VANCOMYCIN [Concomitant]
     Indication: SALMONELLOSIS
     Route: 065

REACTIONS (2)
  - DRUG INEFFECTIVE [None]
  - INFLAMMATION [None]
